FAERS Safety Report 18565383 (Version 4)
Quarter: 2024Q1

REPORT INFORMATION
  Report Type: Spontaneous
  Country: US (occurrence: US)
  Receive Date: 20201201
  Receipt Date: 20240226
  Transmission Date: 20240409
  Serious: Yes (Other)
  Sender: FDA-Public Use
  Company Number: US-PFIZER INC-2020470990

PATIENT
  Age: 76 Year
  Sex: Female
  Weight: 59.864 kg

DRUGS (1)
  1. IBRANCE [Suspect]
     Active Substance: PALBOCICLIB
     Indication: Breast cancer female
     Dosage: 75 MG, ONCE A DAY (21 DAYS ON AND 2 WEEKS OFF)WITH OR WITHOUT FOOD
     Route: 048
     Dates: start: 20180119

REACTIONS (1)
  - Neutropenia [Not Recovered/Not Resolved]
